FAERS Safety Report 8062650-3 (Version None)
Quarter: 2012Q1

REPORT INFORMATION
  Report Type: 
  Country: None (occurrence: None)
  Receive Date: 20120123
  Receipt Date: 20120116
  Transmission Date: 20120608
  Serious: Yes (Death)
  Sender: FDA-Public Use
  Company Number: JP-ASTELLAS-2011JP008996

PATIENT

DRUGS (1)
  1. VESICARE [Suspect]
     Dosage: UNK
     Route: 048

REACTIONS (1)
  - ILEUS [None]
